FAERS Safety Report 10224705 (Version 1)
Quarter: 2014Q2

REPORT INFORMATION
  Report Type: Spontaneous
  Country: US (occurrence: US)
  Receive Date: 20140609
  Receipt Date: 20140609
  Transmission Date: 20141212
  Serious: No
  Sender: FDA-Public Use
  Company Number: US-TEVA-487253USA

PATIENT
  Age: 29 Year
  Sex: Female
  Weight: 69.46 kg

DRUGS (1)
  1. PLAN B ONE-STEP [Suspect]
     Indication: MENSTRUAL CYCLE MANAGEMENT
     Dosage: 1.5 MILLIGRAM DAILY;
     Route: 048
     Dates: start: 201311, end: 201311

REACTIONS (2)
  - Menstruation irregular [Recovered/Resolved]
  - Off label use [Unknown]
